FAERS Safety Report 20655319 (Version 15)
Quarter: 2025Q1

REPORT INFORMATION
  Report Type: Report from Study
  Country: US (occurrence: US)
  Receive Date: 20220330
  Receipt Date: 20250327
  Transmission Date: 20250409
  Serious: Yes (Hospitalization, Other)
  Sender: TAKEDA
  Company Number: US-SHIRE-US202030668

PATIENT
  Age: 80 Year
  Sex: Female

DRUGS (3)
  1. HUMAN IMMUNOGLOBULIN G [Suspect]
     Active Substance: HUMAN IMMUNOGLOBULIN G
     Indication: Primary immunodeficiency syndrome
     Dosage: 17 GRAM, 1/WEEK
  2. HUMAN IMMUNOGLOBULIN G [Suspect]
     Active Substance: HUMAN IMMUNOGLOBULIN G
     Indication: Immunodeficiency common variable
  3. ORENCIA [Concomitant]
     Active Substance: ABATACEPT
     Indication: Arthritis

REACTIONS (35)
  - Illness [Unknown]
  - Peripheral embolism [Recovering/Resolving]
  - Autoimmune disorder [Unknown]
  - Corneal dystrophy [Unknown]
  - Pulmonary thrombosis [Recovering/Resolving]
  - Thrombosis [Recovering/Resolving]
  - Chest pain [Recovering/Resolving]
  - Dyspnoea [Recovering/Resolving]
  - Back pain [Recovering/Resolving]
  - Angiopathy [Unknown]
  - Lung disorder [Unknown]
  - Full blood count decreased [Unknown]
  - Lichen planus [Unknown]
  - Hidradenitis [Unknown]
  - Thyroid disorder [Unknown]
  - Staphylococcal infection [Recovered/Resolved]
  - Neutrophil count decreased [Unknown]
  - Eye disorder [Unknown]
  - Disturbance in attention [Unknown]
  - COVID-19 [Recovering/Resolving]
  - Iris hypopigmentation [Unknown]
  - Diplopia [Unknown]
  - Post-acute COVID-19 syndrome [Unknown]
  - Post procedural complication [Recovering/Resolving]
  - Arthritis [Recovering/Resolving]
  - Inappropriate schedule of product administration [Unknown]
  - Obstruction [Unknown]
  - Thyroid mass [Unknown]
  - Neck mass [Unknown]
  - Arthralgia [Recovering/Resolving]
  - Insomnia [Unknown]
  - Myalgia [Unknown]
  - Pain in extremity [Unknown]
  - Fatigue [Recovering/Resolving]
  - Headache [Unknown]

NARRATIVE: CASE EVENT DATE: 20240901
